FAERS Safety Report 13196144 (Version 2)
Quarter: 2017Q1

REPORT INFORMATION
  Report Type: Report from Study
  Country: US (occurrence: US)
  Receive Date: 20170208
  Receipt Date: 20170308
  Transmission Date: 20170428
  Serious: Yes (Other)
  Sender: FDA-Public Use
  Company Number: US-BRISTOL-MYERS SQUIBB COMPANY-BMS-2017-008666

PATIENT
  Sex: Female
  Weight: 88.9 kg

DRUGS (2)
  1. ABATACEPT [Suspect]
     Active Substance: ABATACEPT
     Indication: RHEUMATOID ARTHRITIS
     Route: 042
  2. ABATACEPT [Suspect]
     Active Substance: ABATACEPT
     Indication: RHEUMATOID ARTHRITIS
     Route: 058

REACTIONS (3)
  - Drug ineffective [Unknown]
  - Alopecia [Unknown]
  - Cardiac failure congestive [Not Recovered/Not Resolved]
